FAERS Safety Report 15144221 (Version 1)
Quarter: 2018Q3

REPORT INFORMATION
  Report Type: Spontaneous
  Country: US (occurrence: US)
  Receive Date: 20180713
  Receipt Date: 20180713
  Transmission Date: 20181010
  Serious: No
  Sender: FDA-Public Use
  Company Number: US-PERRIGO-17US027218

PATIENT
  Age: 34 Year
  Sex: Male
  Weight: 88.44 kg

DRUGS (1)
  1. MINOXIDIL. [Suspect]
     Active Substance: MINOXIDIL
     Indication: ALOPECIA
     Dosage: 1 ML, TWICE
     Route: 061
     Dates: start: 20170926, end: 20170927

REACTIONS (4)
  - Application site scab [Recovering/Resolving]
  - Application site pruritus [Recovering/Resolving]
  - Application site irritation [Recovering/Resolving]
  - Application site erythema [Not Recovered/Not Resolved]

NARRATIVE: CASE EVENT DATE: 20170927
